FAERS Safety Report 17244336 (Version 2)
Quarter: 2020Q3

REPORT INFORMATION
  Report Type: Spontaneous
  Country: US (occurrence: US)
  Receive Date: 20200107
  Receipt Date: 20200826
  Transmission Date: 20201102
  Serious: No
  Sender: FDA-Public Use
  Company Number: US-GILEAD-2019-0444847

PATIENT
  Age: 49 Year
  Sex: Male
  Weight: 68.93 kg

DRUGS (16)
  1. BIKTARVY [Concomitant]
     Active Substance: BICTEGRAVIR SODIUM\EMTRICITABINE\TENOFOVIR ALAFENAMIDE FUMARATE
  2. VITAMIN D [VITAMIN D NOS] [Concomitant]
     Active Substance: VITAMIN D NOS
  3. CALCIUM [Concomitant]
     Active Substance: CALCIUM
  4. MIRTAZAPINE. [Concomitant]
     Active Substance: MIRTAZAPINE
  5. COMBIVIR [Concomitant]
     Active Substance: LAMIVUDINE\ZIDOVUDINE
  6. EPIVIR [Concomitant]
     Active Substance: LAMIVUDINE
  7. RETROVIR [Concomitant]
     Active Substance: ZIDOVUDINE
  8. ATRIPLA [Suspect]
     Active Substance: EFAVIRENZ\EMTRICITABINE\TENOFOVIR DISOPROXIL FUMARATE
     Indication: HIV INFECTION
     Dosage: UNK
     Route: 048
     Dates: start: 20060914, end: 20181002
  9. KALETRA [Concomitant]
     Active Substance: LOPINAVIR\RITONAVIR
  10. CRIXIVAN [Concomitant]
     Active Substance: INDINAVIR SULFATE
  11. VIDEX [Concomitant]
     Active Substance: DIDANOSINE
  12. VIDEX EC [Concomitant]
     Active Substance: DIDANOSINE
  13. OTEZLA [Concomitant]
     Active Substance: APREMILAST
  14. VIREAD [Suspect]
     Active Substance: TENOFOVIR DISOPROXIL FUMARATE
     Indication: HIV INFECTION
     Dosage: UNK
     Route: 048
     Dates: start: 20030819, end: 20060826
  15. SUSTIVA [Concomitant]
     Active Substance: EFAVIRENZ
  16. VIRACEPT [Concomitant]
     Active Substance: NELFINAVIR MESYLATE

REACTIONS (7)
  - Economic problem [Not Recovered/Not Resolved]
  - Depression [Not Recovered/Not Resolved]
  - Pain [Not Recovered/Not Resolved]
  - Emotional distress [Not Recovered/Not Resolved]
  - Osteopenia [Not Recovered/Not Resolved]
  - Anhedonia [Not Recovered/Not Resolved]
  - Anxiety [Not Recovered/Not Resolved]

NARRATIVE: CASE EVENT DATE: 20161103
